FAERS Safety Report 7247419-1 (Version None)
Quarter: 2011Q1

REPORT INFORMATION
  Report Type: 
  Country: None (occurrence: None)
  Receive Date: 20110127
  Receipt Date: 20110118
  Transmission Date: 20110831
  Serious: No
  Sender: FDA-Public Use
  Company Number: PHHY2010US87784

PATIENT
  Sex: Female

DRUGS (11)
  1. THYROID PREPARATIONS [Concomitant]
     Dosage: UNK
  2. DARVOCET-N 100 [Concomitant]
     Dosage: UNK
  3. FENTANYL [Concomitant]
     Dosage: UNK
  4. EXTAVIA [Suspect]
     Indication: MULTIPLE SCLEROSIS
     Dosage: 0.25 MG, QOD
     Dates: start: 20101104
  5. PROZAC [Concomitant]
     Dosage: UNK
  6. NAMENDA [Concomitant]
     Dosage: UNK
  7. AMPYRA [Concomitant]
     Dosage: UNK
  8. ABILIFY [Concomitant]
     Dosage: UNK
  9. VITAMIN D [Concomitant]
     Dosage: UNK
  10. GABAPENTIN [Concomitant]
     Dosage: UNK
  11. BACLOFEN [Concomitant]
     Dosage: UNK

REACTIONS (4)
  - RED BLOOD CELL COUNT DECREASED [None]
  - INJECTION SITE ERYTHEMA [None]
  - MUSCLE SPASMS [None]
  - WHITE BLOOD CELL COUNT DECREASED [None]
